FAERS Safety Report 7990864-7 (Version None)
Quarter: 2011Q4

REPORT INFORMATION
  Report Type: 
  Country: None (occurrence: None)
  Receive Date: 20111219
  Receipt Date: 20111212
  Transmission Date: 20120403
  Serious: Yes (Death, Hospitalization, Other)
  Sender: FDA-Public Use
  Company Number: US-TEVA-309491USA

PATIENT
  Sex: Male

DRUGS (15)
  1. BENZTROPINE MESYLATE [Concomitant]
  2. AMLODIPINE [Concomitant]
  3. DOCUSATE [Concomitant]
  4. SIROLIMUS [Concomitant]
  5. ACETYLSALICYLIC ACID SRT [Concomitant]
     Dosage: CHILDREN'S
  6. ATORVASTATIN [Concomitant]
  7. ACETAMINOPHEN [Concomitant]
     Dosage: EVERY 6 HOURS PRN
  8. CLOZAPINE [Concomitant]
  9. MULTI-VITAMIN [Concomitant]
  10. CITALOPRAM [Suspect]
     Dosage: 10 MILLIGRAM;
     Route: 048
     Dates: start: 20110610, end: 20110619
  11. ENALAPRIL MALEATE [Concomitant]
  12. MYCOPHENOLATE MOFETIL [Concomitant]
  13. METOPROLOL [Concomitant]
  14. PANTOPRAZOLE [Concomitant]
  15. VALPROATE SODIUM [Concomitant]

REACTIONS (8)
  - PALLOR [None]
  - CARDIAC ARREST [None]
  - BODY TEMPERATURE INCREASED [None]
  - FEELING COLD [None]
  - FALL [None]
  - VOMITING [None]
  - CHILLS [None]
  - NAUSEA [None]
